FAERS Safety Report 23246130 (Version 1)
Quarter: 2023Q4

REPORT INFORMATION
  Report Type: Spontaneous
  Country: US (occurrence: None)
  Receive Date: 20231130
  Receipt Date: 20231130
  Transmission Date: 20240110
  Serious: Yes (unspecified)
  Sender: FDA-Public Use
  Company Number: None

PATIENT
  Age: 68 Year
  Sex: Female
  Weight: 67.5 kg

DRUGS (4)
  1. VYEPTI [Suspect]
     Active Substance: EPTINEZUMAB-JJMR
     Indication: Migraine
     Dosage: OTHER QUANTITY : 1 1;?OTHER FREQUENCY : 3 MONTHS;?OTHER ROUTE : INFUSIONS;?
     Route: 050
  2. dilauded [Concomitant]
  3. CLONOPIN [Concomitant]
     Active Substance: CLONAZEPAM
  4. HYDROXYZINE [Concomitant]
     Active Substance: HYDROXYZINE HYDROCHLORIDE

REACTIONS (2)
  - Therapy cessation [None]
  - Oropharyngeal pain [None]

NARRATIVE: CASE EVENT DATE: 20231108
